FAERS Safety Report 8542630-1 (Version None)
Quarter: 2012Q3

REPORT INFORMATION
  Report Type: 
  Country: None (occurrence: None)
  Receive Date: 20120727
  Receipt Date: 20120716
  Transmission Date: 20120928
  Serious: Yes (Hospitalization)
  Sender: FDA-Public Use
  Company Number: DE-BRISTOL-MYERS SQUIBB COMPANY-15522477

PATIENT
  Age: 76 Year
  Sex: Male
  Weight: 75 kg

DRUGS (1)
  1. IPILIMUMAB [Suspect]
     Indication: MALIGNANT MELANOMA
     Route: 042
     Dates: start: 20110111, end: 20110111

REACTIONS (11)
  - AUTOIMMUNE HEPATITIS [None]
  - EMPHYSEMA [None]
  - SPINAL OSTEOARTHRITIS [None]
  - METASTASES TO GALLBLADDER [None]
  - BUNDLE BRANCH BLOCK RIGHT [None]
  - QRS AXIS ABNORMAL [None]
  - AORTIC ARTERIOSCLEROSIS [None]
  - PULMONARY VALVE STENOSIS [None]
  - CHOLELITHIASIS [None]
  - GENERAL PHYSICAL HEALTH DETERIORATION [None]
  - PULMONARY EMBOLISM [None]
